FAERS Safety Report 26028427 (Version 2)
Quarter: 2025Q4

REPORT INFORMATION
  Report Type: Spontaneous
  Country: US (occurrence: US)
  Receive Date: 20251111
  Receipt Date: 20251127
  Transmission Date: 20260118
  Serious: Yes (Other)
  Sender: ARDELYX
  Company Number: US-ARDELYX-2025ARDX008244

PATIENT
  Age: 26 Year
  Sex: Male

DRUGS (2)
  1. IBSRELA [Suspect]
     Active Substance: TENAPANOR HYDROCHLORIDE
     Indication: Irritable bowel syndrome
     Dosage: 50 MG, BID
     Route: 048
     Dates: start: 2022
  2. OXCARBAZEPINE [Concomitant]
     Active Substance: OXCARBAZEPINE
     Indication: Epilepsy
     Dosage: UNK
     Route: 065

REACTIONS (5)
  - Epilepsy [Recovered/Resolved]
  - Seizure [Recovered/Resolved]
  - Insomnia [Recovered/Resolved]
  - Abdominal discomfort [Recovered/Resolved]
  - Somnolence [Recovered/Resolved]

NARRATIVE: CASE EVENT DATE: 20251029
